FAERS Safety Report 9519507 (Version 1)
Quarter: 2013Q3

REPORT INFORMATION
  Report Type: Spontaneous
  Country: US (occurrence: US)
  Receive Date: 20130912
  Receipt Date: 20130912
  Transmission Date: 20140515
  Serious: No
  Sender: FDA-Public Use
  Company Number: US-VERTEX PHARMACEUTICALS INC-2013-009418

PATIENT
  Age: 28 Year
  Sex: Male
  Weight: 79.37 kg

DRUGS (5)
  1. INCIVEK [Suspect]
     Indication: HEPATITIS C
     Dosage: 750 MG, TID
     Route: 048
     Dates: start: 201308
  2. PEGASYS [Suspect]
     Indication: HEPATITIS C
     Dosage: 180 ?G, QW
     Route: 058
     Dates: start: 20130201
  3. RIBAVIRIN [Suspect]
     Indication: HEPATITIS C
     Dosage: 200 MG, BID
     Route: 048
     Dates: start: 20130201
  4. AMBIEN [Concomitant]
     Indication: SLEEP DISORDER
     Dosage: EVERY NIGHT PO
  5. METOPROLOL [Concomitant]
     Indication: HYPERTENSION
     Dosage: 2 PILLS
     Route: 048

REACTIONS (1)
  - Malaise [Recovered/Resolved]
